FAERS Safety Report 8362236-7 (Version None)
Quarter: 2012Q2

REPORT INFORMATION
  Report Type: 
  Country: None (occurrence: None)
  Receive Date: 20120515
  Receipt Date: 20120509
  Transmission Date: 20120825
  Serious: Yes (Other)
  Sender: FDA-Public Use
  Company Number: US-BAYER-2011-112497

PATIENT
  Age: 32 Year
  Sex: Female
  Weight: 38.549 kg

DRUGS (8)
  1. YAZ [Suspect]
     Indication: ACNE
     Dosage: UNK
     Route: 048
     Dates: start: 20060913, end: 20080110
  2. TRAMADOL HYDROCHLORIDE [Concomitant]
     Dosage: 50 MG, UNK
  3. YASMIN [Suspect]
     Indication: CONTRACEPTION
  4. PROPO-N/APAP [Concomitant]
     Dosage: 100-650
  5. ACYCLOVIR [Concomitant]
     Dosage: 200 MG, UNK
  6. YAZ [Suspect]
     Indication: CONTRACEPTION
  7. YASMIN [Suspect]
     Indication: ACNE
     Dosage: UNK
     Route: 048
     Dates: start: 20060913, end: 20080110
  8. FLUCONAZOLE [Concomitant]
     Dosage: 150 MG, UNK

REACTIONS (2)
  - CHOLELITHIASIS [None]
  - MENTAL DISORDER [None]
